FAERS Safety Report 7742241-1 (Version None)
Quarter: 2011Q3

REPORT INFORMATION
  Report Type: 
  Country: None (occurrence: None)
  Receive Date: 20110901
  Receipt Date: 20110821
  Transmission Date: 20111222
  Serious: Yes (Death)
  Sender: FDA-Public Use
  Company Number: EG-JNJFOC-20110810022

PATIENT
  Age: 57 Year
  Sex: Male

DRUGS (2)
  1. DACOGEN [Suspect]
     Indication: MYELODYSPLASTIC SYNDROME
     Dosage: 20 MG/M2, 1 IN 1 DAY, INTRAVENOUS
     Route: 042
     Dates: start: 20110817, end: 20110819
  2. DIOVAN HCT [Concomitant]

REACTIONS (2)
  - MYOCARDIAL INFARCTION [None]
  - HEPATIC ENZYME INCREASED [None]
